FAERS Safety Report 8782968 (Version 1)
Quarter: 2012Q4

REPORT INFORMATION
  Report Type: 
  Country: US (occurrence: US)
  Receive Date: 20120913
  Receipt Date: 20120913
  Transmission Date: 20130627
  Serious: No
  Sender: FDA-Public Use
  Company Number: US-ASTRAZENECA-2012SE69766

PATIENT
  Age: 53 Year
  Sex: Female
  Weight: 88.5 kg

DRUGS (6)
  1. SEROQUEL [Suspect]
     Indication: BIPOLAR DISORDER
     Route: 048
  2. NARDIL [Concomitant]
     Indication: ANTIDEPRESSANT THERAPY
  3. LITHIUM [Concomitant]
     Indication: BIPOLAR DISORDER
  4. ZOLPIDEM [Concomitant]
     Indication: SLEEP DISORDER
  5. LOVASTATIN [Concomitant]
     Indication: BLOOD CHOLESTEROL INCREASED
  6. LEVOTHYROXINE [Concomitant]
     Indication: HYPOTHYROIDISM

REACTIONS (2)
  - Nasopharyngitis [Recovering/Resolving]
  - Off label use [Unknown]
